FAERS Safety Report 22601182 (Version 1)
Quarter: 2023Q2

REPORT INFORMATION
  Report Type: Spontaneous
  Country: US (occurrence: None)
  Receive Date: 20230613
  Receipt Date: 20230613
  Transmission Date: 20230722
  Serious: No
  Sender: FDA-Public Use
  Company Number: None

PATIENT
  Sex: Male

DRUGS (26)
  1. OXALIPLATIN [Suspect]
     Active Substance: OXALIPLATIN
     Indication: Colon cancer
     Dosage: OTHER FREQUENCY : Q21D;?
     Route: 042
  2. DIPHENHYDRAMINE [Concomitant]
     Active Substance: DIPHENHYDRAMINE
  3. ACLOMETASONE [Concomitant]
  4. AMLODIPINE [Concomitant]
     Active Substance: AMLODIPINE BESYLATE
  5. ARANESP [Concomitant]
     Active Substance: DARBEPOETIN ALFA
  6. ATORVASTATIN [Concomitant]
     Active Substance: ATORVASTATIN
  7. CALCIUM\MAGNESIUM [Concomitant]
     Active Substance: CALCIUM\MAGNESIUM
  8. CLINDAMYCIN [Concomitant]
     Active Substance: CLINDAMYCIN
  9. CLOPIDOGREL [Concomitant]
     Active Substance: CLOPIDOGREL BISULFATE
  10. DILAUDID [Concomitant]
     Active Substance: HYDROMORPHONE HYDROCHLORIDE
  11. DOCUSATE [Concomitant]
  12. FENTANYL [Concomitant]
     Active Substance: FENTANYL
  13. INJECTAFER [Concomitant]
     Active Substance: FERRIC CARBOXYMALTOSE
  14. LACTULOSE [Concomitant]
     Active Substance: LACTULOSE
  15. GABAPENTIN [Concomitant]
     Active Substance: GABAPENTIN
  16. METOPROLOL [Concomitant]
     Active Substance: METOPROLOL
  17. NEUPOGEN [Concomitant]
     Active Substance: FILGRASTIM
  18. PREDNISONE [Concomitant]
     Active Substance: PREDNISONE
  19. PREGABALIN [Concomitant]
     Active Substance: PREGABALIN
  20. RAMIPRIL [Concomitant]
     Active Substance: RAMIPRIL
  21. SENNA [Concomitant]
     Active Substance: SENNA LEAF\SENNOSIDES\SENNOSIDES A AND B
  22. ZARXIO [Concomitant]
     Active Substance: FILGRASTIM-SNDZ
  23. FOSAPREPITANT [Concomitant]
     Active Substance: FOSAPREPITANT
  24. PALONOSETRON [Concomitant]
     Active Substance: PALONOSETRON
  25. IRINOTECAN [Concomitant]
     Active Substance: IRINOTECAN
  26. DEXAMETHASONE [Concomitant]
     Active Substance: DEXAMETHASONE

REACTIONS (2)
  - Disease progression [None]
  - Colon cancer [None]
